FAERS Safety Report 5010999-0 (Version None)
Quarter: 2006Q2

REPORT INFORMATION
  Report Type: 
  Country: None (occurrence: None)
  Receive Date: 20060523
  Receipt Date: 20060504
  Transmission Date: 20061013
  Serious: Yes (Hospitalization, Other)
  Sender: FDA-Public Use
  Company Number: MEDI-0004132

PATIENT
  Age: 6 Month
  Sex: Female

DRUGS (4)
  1. SYNAGIS [Suspect]
     Indication: ANTIVIRAL PROPHYLAXIS
     Dosage: 1 INI 20 D, INTRAMUSCULAR
     Route: 030
  2. CAPTOPRIL [Concomitant]
  3. LASIX [Concomitant]
  4. SPIRONOLACTONE [Concomitant]

REACTIONS (2)
  - CARDIAC DISORDER [None]
  - RESPIRATORY SYNCYTIAL VIRUS INFECTION [None]
